FAERS Safety Report 19211961 (Version 1)
Quarter: 2021Q2

REPORT INFORMATION
  Report Type: Spontaneous
  Country: US (occurrence: US)
  Receive Date: 20210503
  Receipt Date: 20210503
  Transmission Date: 20210717
  Serious: No
  Sender: FDA-Public Use
  Company Number: None

PATIENT

DRUGS (1)
  1. PROLIA [Suspect]
     Active Substance: DENOSUMAB

REACTIONS (5)
  - Bone pain [None]
  - Arthralgia [None]
  - Gait inability [None]
  - Drug ineffective [None]
  - Pain in extremity [None]

NARRATIVE: CASE EVENT DATE: 20201202
